FAERS Safety Report 7513800-6 (Version None)
Quarter: 2011Q2

REPORT INFORMATION
  Report Type: 
  Country: None (occurrence: None)
  Receive Date: 20110531
  Receipt Date: 20110524
  Transmission Date: 20111010
  Serious: Yes (Other)
  Sender: FDA-Public Use
  Company Number: PHHY2011GB45648

PATIENT
  Age: 69 Year
  Sex: Female

DRUGS (2)
  1. COTRIM [Suspect]
     Indication: PNEUMOCYSTIS JIROVECI PNEUMONIA
     Dosage: 2040 MG, QID
     Route: 048
  2. MYCOPHENOLATE MEFETIL [Suspect]
     Dosage: UNK

REACTIONS (10)
  - PSYCHOTIC DISORDER [None]
  - CONFUSIONAL STATE [None]
  - PARANOIA [None]
  - HAEMOPTYSIS [None]
  - PNEUMOCYSTIS JIROVECI PNEUMONIA [None]
  - MUSCLE TWITCHING [None]
  - RESTLESSNESS [None]
  - ABNORMAL BEHAVIOUR [None]
  - COUGH [None]
  - DYSPNOEA [None]
